FAERS Safety Report 5132526-X (Version None)
Quarter: 2006Q4

REPORT INFORMATION
  Report Type: 
  Country: None (occurrence: None)
  Receive Date: 20061023
  Receipt Date: 20060613
  Transmission Date: 20070319
  Serious: Yes (Life-Threatening, Hospitalization)
  Sender: FDA-Public Use
  Company Number: DE-ROCHE-451351

PATIENT
  Age: 54 Year
  Sex: Female

DRUGS (1)
  1. DACLIZUMAB [Suspect]
     Route: 065
     Dates: start: 20060601

REACTIONS (3)
  - ABDOMINAL HAEMATOMA [None]
  - COMPLICATIONS OF TRANSPLANTED LIVER [None]
  - RENAL FAILURE ACUTE [None]
